FAERS Safety Report 7527971-9 (Version None)
Quarter: 2011Q2

REPORT INFORMATION
  Report Type: 
  Country: None (occurrence: None)
  Receive Date: 20110531
  Receipt Date: 20110516
  Transmission Date: 20111010
  Serious: Yes (Hospitalization)
  Sender: FDA-Public Use
  Company Number: 2011CP000093

PATIENT
  Age: 66 Year
  Sex: Male

DRUGS (22)
  1. LORAZEPAM [Suspect]
     Dosage: 1 DOSAGE FORM; 1 DAY; IV
     Route: 042
     Dates: start: 20050630, end: 20050709
  2. HALOPERIDOL [Suspect]
     Dosage: 1 DOSAGE FORM; 1 DAY; IV
     Route: 042
     Dates: start: 20050625, end: 20050704
  3. TORSEMIDE [Suspect]
     Dosage: 1 DOSAGE FORM; 1 DAY;
     Dates: start: 20050622, end: 20050711
  4. HYOSCINE HBR HYT [Suspect]
     Dosage: 20 MG; 1/1DAY; IV
     Route: 042
     Dates: start: 20050709, end: 20050709
  5. CIPROFLOXACIN [Suspect]
     Dosage: 400 MG;  1 DAY; IV
     Route: 042
     Dates: start: 20050709, end: 20050711
  6. PROPOFOL [Suspect]
     Dosage: 320 MG; 1 DAY; IV
     Route: 042
     Dates: start: 20050630, end: 20050709
  7. MAPROTILINE HCL [Suspect]
     Dosage: 1 DOSAGE FORM; 1 DAY; IV
     Route: 042
     Dates: start: 20050628, end: 20050711
  8. NEXIUM [Suspect]
     Dosage: 1 DOSAGE FORM; 1 DAY;
     Dates: start: 20050622, end: 20050711
  9. LORAZEPAM [Suspect]
     Dosage: 1 DOSAGE FORM; 1 DAY; IV
     Route: 042
     Dates: start: 20050630, end: 20050709
  10. PROMETHAZINE HCL [Suspect]
     Dosage: 1 DOSAGE FORM; 1 DAY
     Dates: start: 20050708, end: 20050710
  11. PROPOFOL [Suspect]
     Dosage: 320 MG; 1 DAY; IV
     Route: 042
     Dates: start: 20050622, end: 20050625
  12. CLORAZEPATE DIPOTASSIUM [Suspect]
     Dosage: 1 DOSAGE FORM; IV
     Route: 042
     Dates: start: 20050625, end: 20050708
  13. MADOPAR (MADOPAR) [Suspect]
     Dosage: 125 MG; 1 DAY; PO
     Route: 048
     Dates: start: 20050707, end: 20050710
  14. DIPYRONE (METAMIZOLE SODIUM) [Suspect]
     Dosage: 1000 MG; 1 DAY; IV
     Route: 042
     Dates: start: 20050708, end: 20050709
  15. ASPIRIN [Suspect]
     Dosage: 100 MG; 1 DAY; PO
     Route: 048
     Dates: start: 20050706, end: 20050706
  16. METHYLPREDNISOLONE [Suspect]
     Dosage: 16 MG; 1 DAY; IV
     Route: 042
     Dates: start: 20050624, end: 20050624
  17. ACETAMINOPHEN [Suspect]
     Dosage: 1000 MG; 1/1DAY; IV
     Route: 042
     Dates: start: 20050709, end: 20050709
  18. KETAMINE HYDROCHLORIDE [Suspect]
     Dosage: 1 DOSAGE FORM; IV
     Route: 042
     Dates: start: 20050702, end: 20080708
  19. CLONIDINE [Suspect]
     Dosage: IV
     Route: 042
     Dates: start: 20050624, end: 20050709
  20. MORPHINE SULFATE INJ [Suspect]
     Dosage: 1 DOSAGE FORM
     Dates: start: 20050622, end: 20050622
  21. MIDAZOLAM HCL [Suspect]
     Dosage: 1 DOSAGE FORM; 1 DAY; IV
     Route: 042
     Dates: start: 20050623, end: 20050624
  22. METOCLOPRAMIDE [Suspect]
     Dosage: 16.9 MG; 1 DAY
     Dates: start: 20050709, end: 20050709

REACTIONS (17)
  - DISORIENTATION [None]
  - CHOLANGITIS [None]
  - FALL [None]
  - CHOLECYSTITIS [None]
  - OVERDOSE [None]
  - DRUG ADMINISTRATION ERROR [None]
  - BLOOD PRESSURE FLUCTUATION [None]
  - HAEMOPHILUS TEST POSITIVE [None]
  - KLEBSIELLA TEST POSITIVE [None]
  - ACUTE ABDOMEN [None]
  - TRACHEOBRONCHITIS [None]
  - DRUG INTERACTION [None]
  - PERITONITIS [None]
  - URINARY TRACT INFECTION [None]
  - PSYCHOMOTOR HYPERACTIVITY [None]
  - SUICIDE ATTEMPT [None]
  - LOSS OF CONSCIOUSNESS [None]
